FAERS Safety Report 6220378-6 (Version None)
Quarter: 2009Q2

REPORT INFORMATION
  Report Type: 
  Country: None (occurrence: None)
  Receive Date: 20090610
  Receipt Date: 20090503
  Transmission Date: 20091009
  Serious: Yes (Other)
  Sender: FDA-Public Use
  Company Number: HU-PFIZER INC-2009223866

PATIENT

DRUGS (1)
  1. XALATAN [Suspect]
     Indication: OPEN ANGLE GLAUCOMA
     Dosage: 1.5 MG, 1X/DAY
     Route: 047
     Dates: start: 20090101, end: 20090101

REACTIONS (2)
  - HYPERTENSION [None]
  - TACHYCARDIA [None]
